FAERS Safety Report 10586273 (Version 1)
Quarter: 2014Q4

REPORT INFORMATION
  Report Type: Report from Study
  Country: GB (occurrence: GB)
  Receive Date: 20141117
  Receipt Date: 20141117
  Transmission Date: 20150529
  Serious: Yes (Death)
  Sender: FDA-Public Use
  Company Number: GB-ROCHE-1491401

PATIENT
  Age: 67 Year
  Sex: Male

DRUGS (4)
  1. APREPITANT. [Concomitant]
     Active Substance: APREPITANT
     Indication: PANCREATIC CARCINOMA
     Route: 048
     Dates: end: 20131213
  2. OXALIPLATIN. [Concomitant]
     Active Substance: OXALIPLATIN
     Indication: PANCREATIC CARCINOMA
     Route: 042
     Dates: end: 20131213
  3. CAPECITABINE. [Suspect]
     Active Substance: CAPECITABINE
     Indication: PANCREATIC CARCINOMA
     Route: 048
     Dates: end: 20131213
  4. APREPITANT. [Concomitant]
     Active Substance: APREPITANT
     Route: 048
     Dates: end: 20131213

REACTIONS (1)
  - Death [Fatal]
